FAERS Safety Report 6066213-0 (Version None)
Quarter: 2009Q1

REPORT INFORMATION
  Report Type: 
  Country: None (occurrence: None)
  Receive Date: 20090205
  Receipt Date: 20090203
  Transmission Date: 20090719
  Serious: Yes (Death, Disabling, Other)
  Sender: FDA-Public Use
  Company Number: PHHY2009JP03888

PATIENT
  Age: 83 Year
  Sex: Female

DRUGS (2)
  1. EXJADE [Suspect]
     Indication: IRON OVERLOAD
     Dosage: 625 MG/DAY
     Route: 048
     Dates: start: 20080703, end: 20080707
  2. EXJADE [Suspect]
     Dosage: 625 MG/DAY
     Route: 048
     Dates: start: 20080901, end: 20081118

REACTIONS (4)
  - ARRHYTHMIA [None]
  - CEREBRAL INFARCTION [None]
  - MALAISE [None]
  - VOMITING [None]
